FAERS Safety Report 6392730-X (Version None)
Quarter: 2009Q4

REPORT INFORMATION
  Report Type: 
  Country: None (occurrence: None)
  Receive Date: 20091007
  Receipt Date: 20090828
  Transmission Date: 20100525
  Serious: No
  Sender: FDA-Public Use
  Company Number: US-ALLERGAN-0910908US

PATIENT
  Age: 73 Year
  Sex: Female

DRUGS (8)
  1. LATISSE [Suspect]
     Indication: GROWTH OF EYELASHES
     Dosage: 1 GTT, QHS
     Route: 061
     Dates: start: 20090310, end: 20090805
  2. MULTI-VITAMIN [Concomitant]
  3. FISH OIL [Concomitant]
  4. FLAXSEED OIL [Concomitant]
  5. CALCIUM [Concomitant]
  6. LISINOPRIL [Concomitant]
     Indication: BLOOD PRESSURE
  7. SYSTANE [Concomitant]
  8. BOTOX COSMETIC [Concomitant]
     Indication: SKIN WRINKLING
     Dosage: UNK
     Route: 030
     Dates: start: 20090805, end: 20090805

REACTIONS (1)
  - MADAROSIS [None]
